FAERS Safety Report 6755457-8 (Version None)
Quarter: 2010Q2

REPORT INFORMATION
  Report Type: 
  Country: None (occurrence: None)
  Receive Date: 20100524
  Receipt Date: 20100223
  Transmission Date: 20101027
  Serious: Yes (Other)
  Sender: FDA-Public Use
  Company Number: 007930

PATIENT
  Sex: Female

DRUGS (4)
  1. CIMZIA [Suspect]
     Indication: CROHN'S DISEASE
     Dosage: (400 MG 1X/MONTH SUBCUTANEOUS)
     Route: 058
     Dates: start: 20090218
  2. FLAGYL [Concomitant]
  3. GEN-CIPROFLOXACIN [Concomitant]
  4. PREDNISONE [Concomitant]

REACTIONS (2)
  - PAIN IN EXTREMITY [None]
  - THROMBOSIS [None]
